FAERS Safety Report 7679762-6 (Version None)
Quarter: 2011Q3

REPORT INFORMATION
  Report Type: 
  Country: None (occurrence: None)
  Receive Date: 20110812
  Receipt Date: 20110808
  Transmission Date: 20111222
  Serious: Yes (Life-Threatening)
  Sender: FDA-Public Use
  Company Number: FR-JNJFOC-20110804308

PATIENT
  Sex: Female

DRUGS (5)
  1. MONUROL [Suspect]
     Indication: URINARY TRACT INFECTION
     Dosage: 2 MG IN THE MORNING AND 1 MG IN THE EVENING
     Route: 048
     Dates: start: 20110623, end: 20110623
  2. TIORFAN [Suspect]
     Indication: DIARRHOEA
     Dosage: 2 MG IN THE MORNING AND 1 MG IN THE EVENING
     Route: 048
     Dates: start: 20110623, end: 20110629
  3. MABTHERA [Suspect]
     Indication: NON-HODGKIN'S LYMPHOMA
     Dosage: 2 MG IN THE MORNING AND 1 MG IN THE EVENING
     Route: 042
     Dates: start: 20100914
  4. LOPERAMIDE HCL [Suspect]
     Indication: DIARRHOEA
     Dosage: 2 MG IN THE MORNING AND 1 MG IN THE EVENING
     Route: 048
     Dates: start: 20110627, end: 20110701
  5. NORFLOXACIN [Suspect]
     Indication: DIARRHOEA
     Dosage: 2 MG IN THE MORNING AND 1 MG IN THE EVENING
     Route: 048
     Dates: start: 20110627, end: 20110704

REACTIONS (4)
  - THROMBOCYTOPENIA [None]
  - AGRANULOCYTOSIS [None]
  - LEUKOPENIA [None]
  - MACROCYTOSIS [None]
